FAERS Safety Report 24742196 (Version 1)
Quarter: 2024Q4

REPORT INFORMATION
  Report Type: Spontaneous
  Country: US (occurrence: None)
  Receive Date: 20241217
  Receipt Date: 20241217
  Transmission Date: 20250114
  Serious: No
  Sender: REDHILL BIOPHARMA INC.
  Company Number: US-RedHill Biopharma Inc.-RDH202405-000024

PATIENT
  Age: 68 Year
  Sex: Male

DRUGS (1)
  1. TALICIA [Suspect]
     Active Substance: AMOXICILLIN\OMEPRAZOLE MAGNESIUM\RIFABUTIN
     Indication: Helicobacter infection
     Dosage: TALICIA 250-12.5-10 MILLIGRAM
     Route: 048

REACTIONS (1)
  - Treatment failure [Unknown]
